FAERS Safety Report 23258741 (Version 1)
Quarter: 2023Q4

REPORT INFORMATION
  Report Type: Spontaneous
  Country: US (occurrence: None)
  Receive Date: 20231203
  Receipt Date: 20231203
  Transmission Date: 20240110
  Serious: Yes (Life-Threatening, Hospitalization)
  Sender: FDA-Public Use
  Company Number: None

PATIENT
  Age: 66 Year
  Sex: Female
  Weight: 52.5 kg

DRUGS (1)
  1. PAXLOVID [Suspect]
     Active Substance: NIRMATRELVIR\RITONAVIR

REACTIONS (17)
  - Fall [None]
  - Head injury [None]
  - Seizure [None]
  - Panic attack [None]
  - Pain [None]
  - Agonal respiration [None]
  - Generalised tonic-clonic seizure [None]
  - Cyanosis [None]
  - Unresponsive to stimuli [None]
  - Amnesia [None]
  - Asthenia [None]
  - Tremor [None]
  - Chills [None]
  - Dry throat [None]
  - Blood pressure increased [None]
  - Contusion [None]
  - NIH stroke scale abnormal [None]

NARRATIVE: CASE EVENT DATE: 20230927
